FAERS Safety Report 20222747 (Version 1)
Quarter: 2021Q4

REPORT INFORMATION
  Report Type: Spontaneous
  Country: US (occurrence: US)
  Receive Date: 20211223
  Receipt Date: 20211223
  Transmission Date: 20220304
  Serious: Yes (Hospitalization, Other)
  Sender: FDA-Public Use
  Company Number: US-PFIZER INC-202101782597

PATIENT
  Age: 47 Year
  Sex: Male

DRUGS (1)
  1. DOXYCYCLINE HYCLATE [Suspect]
     Active Substance: DOXYCYCLINE HYCLATE
     Indication: Erythema migrans
     Dosage: UNK

REACTIONS (2)
  - Cellulitis [Recovered/Resolved]
  - Jarisch-Herxheimer reaction [Recovered/Resolved]
